FAERS Safety Report 25576379 (Version 2)
Quarter: 2025Q3

REPORT INFORMATION
  Report Type: Spontaneous
  Country: EU (occurrence: EU)
  Receive Date: 20250718
  Receipt Date: 20250730
  Transmission Date: 20251021
  Serious: Yes (Congenital Anomaly, Other)
  Sender: MYLAN
  Company Number: EU-MYLANLABS-2025M1058375

PATIENT

DRUGS (16)
  1. ACETAMINOPHEN [Suspect]
     Active Substance: ACETAMINOPHEN
     Indication: Rheumatic disorder
  2. ACETAMINOPHEN [Suspect]
     Active Substance: ACETAMINOPHEN
  3. ACETAMINOPHEN [Suspect]
     Active Substance: ACETAMINOPHEN
     Route: 064
  4. ACETAMINOPHEN [Suspect]
     Active Substance: ACETAMINOPHEN
     Route: 064
  5. ACETAMINOPHEN [Suspect]
     Active Substance: ACETAMINOPHEN
  6. ACETAMINOPHEN [Suspect]
     Active Substance: ACETAMINOPHEN
  7. ACETAMINOPHEN [Suspect]
     Active Substance: ACETAMINOPHEN
     Route: 064
  8. ACETAMINOPHEN [Suspect]
     Active Substance: ACETAMINOPHEN
     Route: 064
  9. KETOPROFEN [Suspect]
     Active Substance: KETOPROFEN
     Indication: Rheumatic disorder
     Dosage: 300 MILLIGRAM, QD
  10. KETOPROFEN [Suspect]
     Active Substance: KETOPROFEN
     Dosage: 300 MILLIGRAM, QD
  11. KETOPROFEN [Suspect]
     Active Substance: KETOPROFEN
     Dosage: 300 MILLIGRAM, QD
     Route: 064
  12. KETOPROFEN [Suspect]
     Active Substance: KETOPROFEN
     Dosage: 300 MILLIGRAM, QD
     Route: 064
  13. KETOPROFEN [Suspect]
     Active Substance: KETOPROFEN
     Dosage: 300 MILLIGRAM, QD
  14. KETOPROFEN [Suspect]
     Active Substance: KETOPROFEN
     Dosage: 300 MILLIGRAM, QD
  15. KETOPROFEN [Suspect]
     Active Substance: KETOPROFEN
     Dosage: 300 MILLIGRAM, QD
     Route: 064
  16. KETOPROFEN [Suspect]
     Active Substance: KETOPROFEN
     Dosage: 300 MILLIGRAM, QD
     Route: 064

REACTIONS (3)
  - Embryo-foetal toxicity [Recovered/Resolved]
  - Oligohydramnios [Recovered/Resolved]
  - Foetal exposure during pregnancy [Recovered/Resolved]
